FAERS Safety Report 5333481-X (Version None)
Quarter: 2007Q2

REPORT INFORMATION
  Report Type: 
  Country: None (occurrence: None)
  Receive Date: 20070522
  Receipt Date: 20070522
  Transmission Date: 20071010
  Serious: Yes (Life-Threatening)
  Sender: FDA-Public Use
  Company Number: None

PATIENT
  Age: 15 Year
  Sex: Male

DRUGS (7)
  1. TRILEPTAL [Suspect]
     Indication: BIPOLAR DISORDER
     Dosage: 600MG TWICE DAILY PO
     Route: 048
     Dates: start: 20070207, end: 20070218
  2. TRILEPTAL [Suspect]
     Indication: SCHIZOAFFECTIVE DISORDER
     Dosage: 600MG TWICE DAILY PO
     Route: 048
     Dates: start: 20070207, end: 20070218
  3. QUETIAPINE FUMARATE [Concomitant]
  4. DIVALPROEX SODIUM [Concomitant]
  5. BENZTROPINE [Concomitant]
  6. LEVOTHYROXINE SODIUM [Concomitant]
  7. PROPRANOLOL [Concomitant]

REACTIONS (2)
  - NEUTROPHIL COUNT DECREASED [None]
  - WHITE BLOOD CELL COUNT INCREASED [None]
